FAERS Safety Report 19093540 (Version 1)
Quarter: 2021Q2

REPORT INFORMATION
  Report Type: Spontaneous
  Country: JP (occurrence: JP)
  Receive Date: 20210405
  Receipt Date: 20210405
  Transmission Date: 20210717
  Serious: Yes (Hospitalization)
  Sender: FDA-Public Use
  Company Number: JP-ALLERGAN-2114057US

PATIENT
  Sex: Male

DRUGS (8)
  1. SILODOSIN ? BP [Suspect]
     Active Substance: SILODOSIN
     Indication: PRODUCT USED FOR UNKNOWN INDICATION
     Dosage: 4 MG, BID
     Route: 048
  2. MAGNESIUM OXIDE. [Concomitant]
     Active Substance: MAGNESIUM OXIDE
     Route: 048
  3. EDIROL [Concomitant]
     Active Substance: ELDECALCITOL
     Route: 048
  4. XYZAL [Concomitant]
     Active Substance: LEVOCETIRIZINE DIHYDROCHLORIDE
     Route: 048
  5. AVOLVE [Concomitant]
     Active Substance: DUTASTERIDE
     Route: 048
  6. THEO?DUR [Concomitant]
     Active Substance: THEOPHYLLINE ANHYDROUS
     Route: 048
  7. PANTETHINE [Concomitant]
     Active Substance: PANTETHINE
  8. AMBROXOL HYDROCHLORIDE [Concomitant]
     Active Substance: AMBROXOL HYDROCHLORIDE
     Route: 048

REACTIONS (5)
  - Memory impairment [Unknown]
  - Dizziness [Unknown]
  - Loss of consciousness [Unknown]
  - Malnutrition [Unknown]
  - Fall [Unknown]
